FAERS Safety Report 8200883-3 (Version None)
Quarter: 2012Q1

REPORT INFORMATION
  Report Type: 
  Country: None (occurrence: None)
  Receive Date: 20120227
  Receipt Date: 20120126
  Transmission Date: 20120608
  Serious: Yes (Death, Hospitalization)
  Sender: FDA-Public Use
  Company Number: 2011027280

PATIENT
  Age: 57 Year
  Sex: Female

DRUGS (4)
  1. PRIVIGEN [Suspect]
     Indication: XANTHOGRANULOMA
     Dosage: 30 G QD, INTRAVENOUS (NOT OTHERWISE SPECIFIED)
     Route: 042
     Dates: start: 20101214, end: 20101217
  2. VITAMIN A [Concomitant]
  3. ACETAMINOPHEN [Concomitant]
  4. PRIVIGEN [Suspect]
     Route: 042

REACTIONS (12)
  - DIZZINESS [None]
  - GENERAL PHYSICAL HEALTH DETERIORATION [None]
  - VOMITING [None]
  - ENCEPHALOPATHY [None]
  - HEADACHE [None]
  - HYPERVISCOSITY SYNDROME [None]
  - NAUSEA [None]
  - OFF LABEL USE [None]
  - ISCHAEMIC CEREBRAL INFARCTION [None]
  - HAEMOGLOBIN DECREASED [None]
  - HOT FLUSH [None]
  - THROMBOCYTOPENIA [None]
